FAERS Safety Report 9222658 (Version 1)
Quarter: 2013Q2

REPORT INFORMATION
  Report Type: Spontaneous
  Country: US (occurrence: US)
  Receive Date: 20130410
  Receipt Date: 20130410
  Transmission Date: 20140414
  Serious: Yes (Other)
  Sender: FDA-Public Use
  Company Number: US-PFIZER INC-2013108257

PATIENT
  Age: 64 Year
  Sex: Male

DRUGS (3)
  1. SUTENT [Suspect]
     Indication: RENAL CELL CARCINOMA
     Dosage: 37.5 MG, CYCLIC
  2. SUTENT [Suspect]
     Dosage: UNK
     Dates: end: 2009
  3. SUTENT [Suspect]
     Dosage: UNK
     Dates: end: 201202

REACTIONS (6)
  - Sick sinus syndrome [Unknown]
  - Ventricular fibrillation [Unknown]
  - Hypertension [Unknown]
  - Limb discomfort [Unknown]
  - Disease progression [Unknown]
  - Renal cell carcinoma [Unknown]
